FAERS Safety Report 6072228-9 (Version None)
Quarter: 2009Q1

REPORT INFORMATION
  Report Type: 
  Country: None (occurrence: None)
  Receive Date: 20090206
  Receipt Date: 20090206
  Transmission Date: 20090719
  Serious: Yes (Other)
  Sender: FDA-Public Use
  Company Number: None

PATIENT

DRUGS (1)
  1. HEPARIN SODIUM [Suspect]
     Indication: INTRAOPERATIVE CARE
     Dosage: ROUTINE USE OF 10,000 UNIT/USE 1 X PER PROCEDURE IV
     Route: 042
     Dates: start: 20090101, end: 20090131

REACTIONS (2)
  - COAGULATION TIME ABNORMAL [None]
  - THERAPEUTIC RESPONSE DECREASED [None]
